FAERS Safety Report 5485806-2 (Version None)
Quarter: 2007Q4

REPORT INFORMATION
  Report Type: 
  Country: None (occurrence: None)
  Receive Date: 20071015
  Receipt Date: 20071002
  Transmission Date: 20080405
  Serious: Yes (Other)
  Sender: FDA-Public Use
  Company Number: US-AMGEN-US246558

PATIENT
  Sex: Male

DRUGS (4)
  1. PROCRIT [Suspect]
     Indication: RENAL FAILURE CHRONIC
     Route: 058
     Dates: start: 20050101
  2. CELLCEPT [Concomitant]
  3. PREDNISONE [Concomitant]
  4. SIROLIMUS [Concomitant]
     Dates: end: 20070101

REACTIONS (3)
  - ANAEMIA [None]
  - APLASIA PURE RED CELL [None]
  - KIDNEY TRANSPLANT REJECTION [None]
